FAERS Safety Report 16767954 (Version 7)
Quarter: 2019Q4

REPORT INFORMATION
  Report Type: Spontaneous
  Country: CN (occurrence: CN)
  Receive Date: 20190903
  Receipt Date: 20191204
  Transmission Date: 20200122
  Serious: Yes (Life-Threatening)
  Sender: FDA-Public Use
  Company Number: CN-CELGENEUS-CHN-20190900164

PATIENT
  Age: 83 Year
  Sex: Male

DRUGS (68)
  1. IODINE GLYCEROL [Concomitant]
     Indication: ANTIFUNGAL PROPHYLAXIS
     Route: 002
     Dates: start: 20180826
  2. PIPERACILLIN AND TAZOBACTAM [Concomitant]
     Active Substance: PIPERACILLIN SODIUM\TAZOBACTAM SODIUM
     Indication: PNEUMONIA
     Dosage: 13.5 GRAM
     Route: 041
     Dates: start: 20181020, end: 20181022
  3. PIPERACILLIN AND TAZOBACTAM [Concomitant]
     Active Substance: PIPERACILLIN SODIUM\TAZOBACTAM SODIUM
     Dosage: 13.5 GRAM
     Route: 041
     Dates: start: 20181225, end: 20181225
  4. RECOMBINANT HUMAN GRANULOCYTE COLONY STIMULATING FACTOR [Concomitant]
     Dosage: 300 MICROGRAM
     Route: 058
     Dates: start: 201810, end: 20181029
  5. RECOMBINANT HUMAN GRANULOCYTE COLONY STIMULATING FACTOR [Concomitant]
     Dosage: 400 MICROGRAM
     Route: 058
     Dates: start: 20181226, end: 20190113
  6. PANTOPRAZOLE SODIUM. [Concomitant]
     Active Substance: PANTOPRAZOLE SODIUM
     Indication: GASTROOESOPHAGEAL REFLUX PROPHYLAXIS
     Dosage: 40 MILLIGRAM
     Route: 048
     Dates: start: 20180925, end: 20180925
  7. ITOPRIDE [Concomitant]
     Active Substance: ITOPRIDE
     Indication: ABDOMINAL DISTENSION
     Dosage: 450 MILLIGRAM
     Route: 065
     Dates: start: 20190104, end: 20190114
  8. ITOPRIDE [Concomitant]
     Active Substance: ITOPRIDE
     Indication: PROPHYLAXIS
     Dosage: 450 MILLIGRAM
     Route: 065
     Dates: start: 20190115, end: 20190201
  9. AZACITIDINE. [Suspect]
     Active Substance: AZACITIDINE
     Indication: ACUTE MYELOID LEUKAEMIA
     Route: 065
  10. ESTAZOLAM. [Concomitant]
     Active Substance: ESTAZOLAM
     Indication: PROPHYLAXIS
     Dosage: 1 MILLIGRAM
     Route: 048
     Dates: start: 20180827, end: 20180918
  11. ESTAZOLAM. [Concomitant]
     Active Substance: ESTAZOLAM
     Indication: INSOMNIA
     Dosage: 1 MILLIGRAM
     Route: 048
     Dates: start: 20180925, end: 20181001
  12. SODIUM HYALURONATE [Concomitant]
     Active Substance: HYALURONATE SODIUM
     Indication: OPTIC NEURITIS
     Dosage: 10 MILLIGRAM
     Route: 047
     Dates: start: 20181213
  13. PULMICORT TURBUHALER [Concomitant]
     Active Substance: BUDESONIDE
     Indication: PNEUMONIA
     Dosage: 1 MILLIGRAM
     Route: 055
     Dates: start: 20190114, end: 20190114
  14. RECOMBINANT HUMAN GRANULOCYTE COLONY STIMULATING FACTOR [Concomitant]
     Indication: NEUTROPENIA
     Dosage: 300 MICROGRAM
     Route: 058
     Dates: start: 20180910, end: 20180915
  15. POTASSIUM CITRATE. [Concomitant]
     Active Substance: POTASSIUM CITRATE
     Dosage: 20 MILLILITER
     Route: 048
     Dates: start: 20180829, end: 20180829
  16. PANTOPRAZOLE SODIUM. [Concomitant]
     Active Substance: PANTOPRAZOLE SODIUM
     Dosage: 40 MILLIGRAM
     Route: 041
     Dates: start: 201809, end: 20181001
  17. SODIUM BICARBONATE. [Concomitant]
     Active Substance: SODIUM BICARBONATE
     Indication: PROPHYLAXIS
     Dosage: 120 MILLILITER
     Route: 041
     Dates: start: 20180826, end: 20180831
  18. MUPIROCIN. [Concomitant]
     Active Substance: MUPIROCIN
     Indication: PROPHYLAXIS
  19. CASPOFUNGIN [Concomitant]
     Active Substance: CASPOFUNGIN
     Dosage: 50 MILLIGRAM
     Route: 041
     Dates: start: 20190115, end: 20190201
  20. HIRUDOID [Concomitant]
     Active Substance: GLYCOSAMINOGLYCANS
     Indication: INJECTION SITE SWELLING
     Route: 058
     Dates: start: 20180831
  21. ESTAZOLAM. [Concomitant]
     Active Substance: ESTAZOLAM
     Dosage: 1 MILLIGRAM
     Route: 048
     Dates: start: 20181016, end: 20181109
  22. ESTAZOLAM. [Concomitant]
     Active Substance: ESTAZOLAM
     Dosage: 1 MILLIGRAM
     Route: 048
     Dates: start: 20181117
  23. PIPERACILLIN AND TAZOBACTAM [Concomitant]
     Active Substance: PIPERACILLIN SODIUM\TAZOBACTAM SODIUM
     Dosage: 13.5 GRAM
     Route: 041
     Dates: start: 20190114, end: 20190116
  24. PULMICORT TURBUHALER [Concomitant]
     Active Substance: BUDESONIDE
     Dosage: 4 MILLIGRAM
     Route: 055
     Dates: start: 201901, end: 20190201
  25. IPRATROPIUM BROMIDE. [Concomitant]
     Active Substance: IPRATROPIUM BROMIDE
     Indication: PNEUMONIA
     Dosage: 500 MICROGRAM
     Route: 055
     Dates: start: 20190115, end: 20190115
  26. RECOMBINANT HUMAN GRANULOCYTE COLONY STIMULATING FACTOR [Concomitant]
     Dosage: 300 MICROGRAM
     Route: 058
     Dates: start: 20181016, end: 201810
  27. RECOMBINANT HUMAN GRANULOCYTE COLONY STIMULATING FACTOR [Concomitant]
     Dosage: 300 MICROGRAM
     Route: 058
     Dates: start: 20181119, end: 20181129
  28. POTASSIUM CITRATE. [Concomitant]
     Active Substance: POTASSIUM CITRATE
     Dosage: 60 MILLILITER
     Route: 048
     Dates: start: 20190117, end: 20190128
  29. HYDROGEN SILICONE [Concomitant]
     Indication: PROPHYLAXIS
     Route: 061
     Dates: start: 20180911, end: 201901
  30. BISOPROLOL FUMARATE. [Concomitant]
     Active Substance: BISOPROLOL FUMARATE
     Indication: ATRIAL FIBRILLATION
     Dosage: 5 MILLIGRAM
     Route: 048
     Dates: start: 20180813
  31. SODIUM BICARBONATE. [Concomitant]
     Active Substance: SODIUM BICARBONATE
     Indication: INFECTION PROPHYLAXIS
     Route: 048
  32. CASPOFUNGIN [Concomitant]
     Active Substance: CASPOFUNGIN
     Indication: PNEUMONIA
     Dosage: 70 MILLIGRAM
     Route: 041
     Dates: start: 20181226, end: 20181226
  33. CASPOFUNGIN [Concomitant]
     Active Substance: CASPOFUNGIN
     Dosage: 50 MILLIGRAM
     Route: 041
     Dates: start: 20181227, end: 20190110
  34. PIPERACILLIN AND TAZOBACTAM [Concomitant]
     Active Substance: PIPERACILLIN SODIUM\TAZOBACTAM SODIUM
     Dosage: 13.5 GRAM
     Route: 041
     Dates: start: 20181122, end: 20181210
  35. PIPERACILLIN AND TAZOBACTAM [Concomitant]
     Active Substance: PIPERACILLIN SODIUM\TAZOBACTAM SODIUM
     Dosage: 13.5 GRAM
     Route: 041
     Dates: start: 20190116, end: 20190117
  36. GLYCEROL ETHER [Concomitant]
     Indication: PNEUMONIA
     Dosage: 30 MILLILITER
     Route: 048
     Dates: start: 20190115, end: 20190201
  37. RECOMBINANT HUMAN GRANULOCYTE COLONY STIMULATING FACTOR [Concomitant]
     Dosage: 150 MICROGRAM
     Route: 058
     Dates: start: 20181117, end: 20181117
  38. RECOMBINANT HUMAN GRANULOCYTE COLONY STIMULATING FACTOR [Concomitant]
     Dosage: 600 MICROGRAM
     Route: 058
     Dates: start: 20181218, end: 20181225
  39. RECOMBINANT HUMAN GRANULOCYTE COLONY STIMULATING FACTOR [Concomitant]
     Dosage: 400 MICROGRAM
     Route: 058
     Dates: start: 20190116, end: 20190118
  40. POTASSIUM CITRATE. [Concomitant]
     Active Substance: POTASSIUM CITRATE
     Dosage: 60 MILLILITER
     Route: 048
     Dates: start: 20190201, end: 20190203
  41. MUPIROCIN. [Concomitant]
     Active Substance: MUPIROCIN
     Indication: INJECTION SITE SWELLING
     Route: 003
     Dates: start: 20180831, end: 20190117
  42. RIVAROXABAN [Concomitant]
     Active Substance: RIVAROXABAN
     Route: 065
     Dates: start: 201810, end: 20181010
  43. VENETOCLAX. [Concomitant]
     Active Substance: VENETOCLAX
     Indication: ACUTE MYELOID LEUKAEMIA
     Route: 065
  44. POVIDONE-IODINE. [Concomitant]
     Active Substance: POVIDONE-IODINE
     Indication: INFECTION PROPHYLAXIS
     Route: 061
     Dates: start: 20180826
  45. HYDROGEN SILICONE [Concomitant]
     Indication: DRY SKIN
     Route: 062
     Dates: start: 20190108, end: 20190201
  46. PANTOPRAZOLE SODIUM. [Concomitant]
     Active Substance: PANTOPRAZOLE SODIUM
     Indication: PROPHYLAXIS
     Dosage: 40 MILLIGRAM
     Route: 041
     Dates: start: 20180827, end: 20180903
  47. NORMAL SALINE [Concomitant]
     Active Substance: SODIUM CHLORIDE
     Indication: PROPHYLAXIS
     Dosage: 600 MILLILITER (0.9%)
     Route: 041
     Dates: start: 20180826, end: 20180831
  48. RIVAROXABAN [Concomitant]
     Active Substance: RIVAROXABAN
     Indication: ATRIAL FIBRILLATION
     Route: 065
     Dates: start: 20180918
  49. HIRUDOID [Concomitant]
     Active Substance: GLYCOSAMINOGLYCANS
     Indication: PROPHYLAXIS
  50. HIRUDOID [Concomitant]
     Active Substance: GLYCOSAMINOGLYCANS
     Indication: INJECTION SITE PAIN
  51. PULMICORT TURBUHALER [Concomitant]
     Active Substance: BUDESONIDE
     Dosage: 2 MILLIGRAM
     Route: 055
     Dates: start: 20190115, end: 20190115
  52. IPRATROPIUM BROMIDE. [Concomitant]
     Active Substance: IPRATROPIUM BROMIDE
     Indication: PNEUMONIA
     Dosage: 1000 MICROGRAM
     Route: 055
     Dates: start: 20190115, end: 20190201
  53. METHYLYPREDNISOLONE SODIUM SUCCINATE [Concomitant]
     Indication: PNEUMONIA
     Dosage: 40 MILLIGRAM
     Route: 041
     Dates: start: 20190115, end: 20190115
  54. BISOPROLOL FUMARATE. [Concomitant]
     Active Substance: BISOPROLOL FUMARATE
     Dosage: 5 MILLIGRAM
     Route: 048
     Dates: start: 20181016
  55. COMPOUND BAICALIN  TEA SUPPOSITORY [Concomitant]
     Indication: INFECTION PROPHYLAXIS
     Route: 054
     Dates: start: 20180826
  56. RIVAROXABAN [Concomitant]
     Active Substance: RIVAROXABAN
     Indication: THROMBOSIS PROPHYLAXIS
     Route: 065
     Dates: start: 20180925, end: 20181006
  57. IPRATROPIUM BROMIDE. [Concomitant]
     Active Substance: IPRATROPIUM BROMIDE
     Indication: DYSPNOEA
  58. POTASSIUM CITRATE. [Concomitant]
     Active Substance: POTASSIUM CITRATE
     Indication: HYPOKALAEMIA
     Dosage: 30 MILLILITER
     Route: 048
     Dates: start: 20180828, end: 20180828
  59. UREA. [Concomitant]
     Active Substance: UREA
     Indication: PROPHYLAXIS
     Route: 061
     Dates: start: 20190108, end: 20190201
  60. PANTOPRAZOLE SODIUM. [Concomitant]
     Active Substance: PANTOPRAZOLE SODIUM
     Dosage: 40 MILLIGRAM
     Route: 041
     Dates: start: 20181206, end: 20181212
  61. PANTOPRAZOLE SODIUM. [Concomitant]
     Active Substance: PANTOPRAZOLE SODIUM
     Dosage: 40 MILLIGRAM
     Route: 048
     Dates: start: 20190115, end: 20190115
  62. FEBUXOSTAT. [Concomitant]
     Active Substance: FEBUXOSTAT
     Indication: PROPHYLAXIS
     Dosage: 40 MILLIGRAM
     Route: 048
     Dates: start: 20180826, end: 20180904
  63. SCUTELLARIA BAICALENSIS [Concomitant]
     Indication: INFECTION PROPHYLAXIS
     Dosage: 1 GRAIN (1 OTHER, AS REQUIRED)
     Route: 054
     Dates: start: 20180826
  64. POTASSIUM CITRATE. [Concomitant]
     Active Substance: POTASSIUM CITRATE
     Dosage: 30 MILLILITER
     Route: 048
     Dates: start: 20180830, end: 20180903
  65. PANTOPRAZOLE SODIUM. [Concomitant]
     Active Substance: PANTOPRAZOLE SODIUM
     Dosage: 40 MILLIGRAM
     Route: 041
     Dates: start: 20181102, end: 20181109
  66. METHYLYPREDNISOLONE SODIUM SUCCINATE [Concomitant]
     Dosage: 40 MILLIGRAM
     Route: 041
     Dates: start: 20190116, end: 20190116
  67. MUPIROCIN. [Concomitant]
     Active Substance: MUPIROCIN
     Indication: INJECTION SITE PAIN
  68. CASPOFUNGIN [Concomitant]
     Active Substance: CASPOFUNGIN
     Dosage: 70 MILLIGRAM
     Route: 041
     Dates: start: 20190114, end: 20190114

REACTIONS (1)
  - Cardiac failure [Not Recovered/Not Resolved]

NARRATIVE: CASE EVENT DATE: 20190116
